FAERS Safety Report 5598280-2 (Version None)
Quarter: 2008Q1

REPORT INFORMATION
  Report Type: 
  Country: None (occurrence: None)
  Receive Date: 20080117
  Receipt Date: 20080117
  Transmission Date: 20080703
  Serious: Yes (Other)
  Sender: FDA-Public Use
  Company Number: None

PATIENT
  Age: 43 Year
  Sex: Female
  Weight: 77.9 kg

DRUGS (1)
  1. OXALIPLATIN [Suspect]

REACTIONS (13)
  - ANGIOEDEMA [None]
  - BLOOD PRESSURE DIASTOLIC INCREASED [None]
  - CHEST PAIN [None]
  - CRYING [None]
  - EAR DISCOMFORT [None]
  - FLUSHING [None]
  - HEART RATE INCREASED [None]
  - INFUSION RELATED REACTION [None]
  - NAUSEA [None]
  - RESPIRATORY RATE INCREASED [None]
  - RETCHING [None]
  - THROAT IRRITATION [None]
  - THROAT TIGHTNESS [None]
